FAERS Safety Report 16872409 (Version 2)
Quarter: 2019Q4

REPORT INFORMATION
  Report Type: Spontaneous
  Country: BE (occurrence: BE)
  Receive Date: 20191001
  Receipt Date: 20191025
  Transmission Date: 20200122
  Serious: Yes (Disabling)
  Sender: FDA-Public Use
  Company Number: BE-TEVA-2019-BE-1115215

PATIENT
  Age: 73 Year
  Sex: Female
  Weight: 65.5 kg

DRUGS (10)
  1. CETIRIZINE [Concomitant]
     Active Substance: CETIRIZINE HYDROCHLORIDE
     Dosage: IF NECESSARY
     Route: 048
  2. RANITIDINE 300 MG [Concomitant]
     Active Substance: RANITIDINE HYDROCHLORIDE
     Dosage: 1 DOSAGE FORMS
     Route: 048
  3. L-THYROXINE CHRISTIAENS 50 UG [Concomitant]
     Dosage: 1 DOSAGE FORMS
     Route: 048
  4. LEVOFLOXACINE 250 MG [Suspect]
     Active Substance: LEVOFLOXACIN
     Dosage: 2 DOSAGE FORMS
     Route: 048
     Dates: start: 20190802, end: 20190810
  5. VENTOLIN 100 UCG/DOSE [Concomitant]
     Dosage: IF NECESSARY
     Route: 055
  6. OMEPRAZOLE 20 MG [Concomitant]
     Active Substance: OMEPRAZOLE
     Dosage: 1 DOSAGE FORMS
     Route: 048
  7. ROSUVASTATINE 10 MG [Concomitant]
     Dosage: 1 DOSAGE FORM
     Route: 048
  8. UNIDIAMICRON 60 MG [Concomitant]
     Route: 048
  9. EMCONCOR 5 MG [Concomitant]
     Dosage: 2 DOSAGE FORMS
     Route: 048
  10. METFORMINE 850 MG [Concomitant]
     Active Substance: METFORMIN HYDROCHLORIDE
     Dosage: 2 DOSAGE FORMS
     Route: 048

REACTIONS (2)
  - Tendon disorder [Recovering/Resolving]
  - Mobility decreased [Recovering/Resolving]

NARRATIVE: CASE EVENT DATE: 20190805
